FAERS Safety Report 9525145 (Version 1)
Quarter: 2013Q1

REPORT INFORMATION
  Report Type: Spontaneous
  Country: US (occurrence: None)
  Receive Date: 20130314
  Receipt Date: 20130314
  Transmission Date: 20140127
  Serious: No
  Sender: FDA-Public Use
  Company Number: 1301USA011629

PATIENT
  Age: 57 Year
  Sex: Male

DRUGS (3)
  1. VICTRELIS (BOCEPREVIR) CAPSULE, 200MG [Suspect]
     Dosage: UNK
     Dates: start: 201210, end: 20130102
  2. RIBAVIRIN (RIBAVIRIN) CAPSULE [Suspect]
     Dosage: UNK?
  3. INTERFERON [Suspect]

REACTIONS (1)
  - Inappropriate schedule of drug administration [None]
